FAERS Safety Report 21735015 (Version 1)
Quarter: 2022Q4

REPORT INFORMATION
  Report Type: Other
  Country: US (occurrence: None)
  Receive Date: 20221215
  Receipt Date: 20221215
  Transmission Date: 20230113
  Serious: Yes (Hospitalization)
  Sender: FDA-Public Use
  Company Number: US-ROCHE-3234395

PATIENT
  Age: 72 Year
  Sex: Female
  Weight: 86.260 kg

DRUGS (3)
  1. OCREVUS [Suspect]
     Active Substance: OCRELIZUMAB
     Indication: Relapsing-remitting multiple sclerosis
     Dosage: DOSE UNKNOWN, ONCE EVERY 6 MONTHS ;ONGOING: NO, DATE OF MOST RECENT INFUSION: 14/SEP/2022
     Route: 042
     Dates: start: 2020
  2. OCREVUS [Suspect]
     Active Substance: OCRELIZUMAB
     Indication: Primary progressive multiple sclerosis
  3. TRULICITY [Concomitant]
     Active Substance: DULAGLUTIDE

REACTIONS (4)
  - Muscular weakness [Recovering/Resolving]
  - Fall [Unknown]
  - Cystitis [Recovered/Resolved with Sequelae]
  - Urinary incontinence [Not Recovered/Not Resolved]

NARRATIVE: CASE EVENT DATE: 20220901
